FAERS Safety Report 7246157-9 (Version None)
Quarter: 2011Q1

REPORT INFORMATION
  Report Type: 
  Country: None (occurrence: None)
  Receive Date: 20110126
  Receipt Date: 20110119
  Transmission Date: 20110831
  Serious: Yes (Disabling)
  Sender: FDA-Public Use
  Company Number: A0908782A

PATIENT
  Age: 17 Year
  Sex: Female

DRUGS (1)
  1. PAXIL [Suspect]
     Indication: OBSESSIVE-COMPULSIVE DISORDER
     Route: 048
     Dates: end: 20100301

REACTIONS (16)
  - ANGER [None]
  - ABNORMAL BEHAVIOUR [None]
  - HYPERSOMNIA [None]
  - WEIGHT INCREASED [None]
  - EMOTIONAL DISORDER [None]
  - SOMNOLENCE [None]
  - HYPERHIDROSIS [None]
  - DIZZINESS [None]
  - PARAESTHESIA [None]
  - SUICIDAL IDEATION [None]
  - NEGATIVISM [None]
  - TREMOR [None]
  - CHILLS [None]
  - MEMORY IMPAIRMENT [None]
  - CRYING [None]
  - DECREASED APPETITE [None]
